FAERS Safety Report 7476865-6 (Version None)
Quarter: 2011Q2

REPORT INFORMATION
  Report Type: 
  Country: None (occurrence: None)
  Receive Date: 20110512
  Receipt Date: 20090601
  Transmission Date: 20111010
  Serious: Yes (Other)
  Sender: FDA-Public Use
  Company Number: US-BAYER-200922306NA

PATIENT
  Age: 62 Year
  Sex: Female
  Weight: 117.91 kg

DRUGS (10)
  1. ANCEF [Concomitant]
     Dosage: 2 GRAMS MULTIPLE DOSES
  2. LISINOPRIL [Concomitant]
  3. TRASYLOL [Suspect]
  4. FUROSEMIDE [Concomitant]
     Indication: PRODUCT USED FOR UNKNOWN INDICATION
  5. VERSED [Concomitant]
  6. TRASYLOL [Suspect]
     Dosage: UNK
  7. BYETTA [Concomitant]
  8. TRASYLOL [Suspect]
     Indication: CORONARY ARTERY BYPASS
     Dosage: 200CC, FOLLOWED BY 50CC/HR
     Route: 042
     Dates: start: 20040726, end: 20040726
  9. LOVASTATIN [Concomitant]
  10. METOPROLOL TARTRATE [Concomitant]
     Indication: PRODUCT USED FOR UNKNOWN INDICATION

REACTIONS (8)
  - EMOTIONAL DISTRESS [None]
  - ANXIETY [None]
  - RENAL FAILURE [None]
  - STRESS [None]
  - FEAR [None]
  - RENAL INJURY [None]
  - PAIN [None]
  - UNEVALUABLE EVENT [None]
